FAERS Safety Report 16399447 (Version 5)
Quarter: 2022Q3

REPORT INFORMATION
  Report Type: Report from Study
  Country: CA (occurrence: CA)
  Receive Date: 20190606
  Receipt Date: 20220708
  Transmission Date: 20221027
  Serious: Yes (Hospitalization, Other)
  Sender: FDA-Public Use
  Company Number: CA-GLAXOSMITHKLINE-CA2019GSK100096

PATIENT

DRUGS (8)
  1. MEPOLIZUMAB [Suspect]
     Active Substance: MEPOLIZUMAB
     Indication: Asthma
     Dosage: 100 MG, Z, MONTHLY
     Route: 042
     Dates: start: 20170719
  2. MEPOLIZUMAB [Suspect]
     Active Substance: MEPOLIZUMAB
     Dosage: 100 MG, Z, MONTHLY
     Route: 042
  3. MEPOLIZUMAB [Suspect]
     Active Substance: MEPOLIZUMAB
     Dosage: 100 MG, Z, MONTHLY
     Route: 042
  4. VENTOLIN [Suspect]
     Active Substance: ALBUTEROL SULFATE
     Indication: Product used for unknown indication
     Dosage: UNK
  5. FUROSEMIDE [Concomitant]
     Active Substance: FUROSEMIDE
     Indication: Product used for unknown indication
     Dosage: 12.5 MG, BID
  6. FUROSEMIDE [Concomitant]
     Active Substance: FUROSEMIDE
     Dosage: 25 MG, BID
  7. METOPROLOL [Concomitant]
     Active Substance: METOPROLOL
     Indication: Product used for unknown indication
     Dosage: 12.5 MG, BID
  8. METOPROLOL [Concomitant]
     Active Substance: METOPROLOL
     Dosage: 25 MG, BID

REACTIONS (11)
  - Myocardial infarction [Unknown]
  - Diabetes mellitus [Unknown]
  - Dyspnoea [Unknown]
  - Palpitations [Unknown]
  - Arrhythmia [Unknown]
  - Cough [Unknown]
  - Malaise [Unknown]
  - Sleep disorder due to a general medical condition [Unknown]
  - Asthma [Unknown]
  - Loss of personal independence in daily activities [Unknown]
  - Wheezing [Unknown]

NARRATIVE: CASE EVENT DATE: 20191101
